FAERS Safety Report 8779524 (Version 1)
Quarter: 2012Q4

REPORT INFORMATION
  Report Type: 
  Country: CO (occurrence: CO)
  Receive Date: 20120912
  Receipt Date: 20120912
  Transmission Date: 20130627
  Serious: Yes (Other)
  Sender: FDA-Public Use
  Company Number: CO-PFIZER INC-2012224259

PATIENT
  Age: 69 Year
  Sex: Female

DRUGS (2)
  1. NORVAS [Suspect]
     Dosage: UNK
     Dates: start: 201203
  2. INSULIN [Concomitant]
     Indication: DIABETES MELLITUS
     Dosage: 10 ml, 1x/day
     Route: 058
     Dates: start: 2004

REACTIONS (1)
  - Renal failure [Not Recovered/Not Resolved]
